FAERS Safety Report 12640430 (Version 1)
Quarter: 2016Q3

REPORT INFORMATION
  Report Type: Spontaneous
  Country: US (occurrence: None)
  Receive Date: 20160809
  Receipt Date: 20160809
  Transmission Date: 20161109
  Serious: No
  Sender: FDA-Public Use
  Company Number: None

PATIENT

DRUGS (4)
  1. DULOXETINE HCL DULOXETINE [Suspect]
     Active Substance: DULOXETINE HYDROCHLORIDE
     Route: 048
  2. DULOXETINE HCL DULOXETINE [Suspect]
     Active Substance: DULOXETINE HYDROCHLORIDE
     Route: 048
  3. COLACE [Suspect]
     Active Substance: DOCUSATE SODIUM
  4. COQ 10 [Suspect]
     Active Substance: UBIDECARENONE

REACTIONS (2)
  - Drug dispensing error [None]
  - Transcription medication error [None]
